FAERS Safety Report 9384337 (Version 3)
Quarter: 2013Q3

REPORT INFORMATION
  Report Type: Spontaneous
  Country: IT (occurrence: IT)
  Receive Date: 20130705
  Receipt Date: 20130731
  Transmission Date: 20140515
  Serious: Yes (Hospitalization)
  Sender: FDA-Public Use
  Company Number: PHHY2013IT069142

PATIENT
  Age: 42 Year
  Sex: Female

DRUGS (1)
  1. GILENYA [Suspect]
     Indication: MULTIPLE SCLEROSIS
     Dosage: 0.5 MG, QD
     Route: 048
     Dates: start: 20130617, end: 20130630

REACTIONS (16)
  - Multiple sclerosis relapse [Unknown]
  - Motor dysfunction [Not Recovered/Not Resolved]
  - Nervous system disorder [Not Recovered/Not Resolved]
  - Central nervous system lesion [Not Recovered/Not Resolved]
  - Visual impairment [Unknown]
  - Movement disorder [Unknown]
  - Muscular weakness [Not Recovered/Not Resolved]
  - Cognitive disorder [Unknown]
  - Disorientation [Unknown]
  - Confusional state [Unknown]
  - Visual acuity reduced [Unknown]
  - Vision blurred [Unknown]
  - Cranial nerve disorder [Unknown]
  - Cerebellar syndrome [Unknown]
  - Ataxia [Unknown]
  - Apraxia [Unknown]
